FAERS Safety Report 6273152-9 (Version None)
Quarter: 2009Q3

REPORT INFORMATION
  Report Type: 
  Country: None (occurrence: None)
  Receive Date: 20090709
  Receipt Date: 20090624
  Transmission Date: 20100115
  Serious: Yes (Hospitalization)
  Sender: FDA-Public Use
  Company Number: GAM-099-09-AU

PATIENT
  Age: 55 Year
  Sex: Male

DRUGS (2)
  1. OCTAGAM [Suspect]
     Indication: CHRONIC INFLAMMATORY DEMYELINATING POLYRADICULONEUROPATHY
     Dosage: 50 G I.V.
     Route: 042
     Dates: start: 20090616, end: 20090617
  2. OCTAGAM [Suspect]

REACTIONS (1)
  - ACUTE MYOCARDIAL INFARCTION [None]
